FAERS Safety Report 7085829-6 (Version None)
Quarter: 2010Q4

REPORT INFORMATION
  Report Type: 
  Country: None (occurrence: None)
  Receive Date: 20101105
  Receipt Date: 20101028
  Transmission Date: 20110411
  Serious: Yes (Hospitalization)
  Sender: FDA-Public Use
  Company Number: US-SANOFI-AVENTIS-2010SA066370

PATIENT
  Age: 57 Year
  Sex: Female

DRUGS (2)
  1. LANTUS [Suspect]
     Dosage: DOSE:15 UNIT(S)
     Route: 058
  2. IMMUNOSUPPRESSIVE AGENTS [Concomitant]

REACTIONS (2)
  - HYPOGLYCAEMIA [None]
  - KIDNEY TRANSPLANT REJECTION [None]
